FAERS Safety Report 15921886 (Version 2)
Quarter: 2019Q1

REPORT INFORMATION
  Report Type: Spontaneous
  Country: US (occurrence: US)
  Receive Date: 20190205
  Receipt Date: 20190219
  Transmission Date: 20190417
  Serious: No
  Sender: FDA-Public Use
  Company Number: US-ALLERGAN-1803946US

PATIENT
  Age: 30 Year
  Sex: Female
  Weight: 135 kg

DRUGS (1)
  1. BOTOX COSMETIC [Suspect]
     Active Substance: ONABOTULINUMTOXINA
     Indication: SKIN WRINKLING
     Dosage: 30 UNITS, SINGLE
     Route: 030
     Dates: start: 20180117, end: 20180117

REACTIONS (5)
  - Application site erythema [Unknown]
  - Application site swelling [Unknown]
  - Application site infection [Unknown]
  - Injection site urticaria [Unknown]
  - Application site warmth [Unknown]

NARRATIVE: CASE EVENT DATE: 20180118
